FAERS Safety Report 26069872 (Version 1)
Quarter: 2025Q4

REPORT INFORMATION
  Report Type: Spontaneous
  Country: US (occurrence: US)
  Receive Date: 20251120
  Receipt Date: 20251120
  Transmission Date: 20260117
  Serious: Yes (Other)
  Sender: CATALYST PHARMA
  Company Number: US-CATALYST PHARMACEUTICALS-US-CATA-25-01322

PATIENT
  Age: 3 Year
  Sex: Male
  Weight: 19.048 kg

DRUGS (3)
  1. AGAMREE [Suspect]
     Active Substance: VAMOROLONE
     Indication: Duchenne muscular dystrophy
     Dosage: 2 ML ONCE A DAY
     Route: 048
     Dates: start: 20240926
  2. AGAMREE [Suspect]
     Active Substance: VAMOROLONE
     Dosage: 2.5 ML ONCE A DAY
     Route: 048
     Dates: start: 20250408
  3. PREDNISONE [Concomitant]
     Active Substance: PREDNISONE
     Indication: Product used for unknown indication
     Dosage: 1 MG AS NEEDED
     Route: 065

REACTIONS (1)
  - Stenotrophomonas infection [Not Recovered/Not Resolved]

NARRATIVE: CASE EVENT DATE: 20250301
